FAERS Safety Report 14005128 (Version 1)
Quarter: 2017Q3

REPORT INFORMATION
  Report Type: Other
  Country: GB (occurrence: GB)
  Receive Date: 20170922
  Receipt Date: 20170922
  Transmission Date: 20171128
  Serious: Yes (Disabling, Other)
  Sender: FDA-Public Use
  Company Number: GB-LUPIN PHARMACEUTICALS INC.-2017-05519

PATIENT
  Age: 50 Year
  Sex: Female
  Weight: 69.39 kg

DRUGS (2)
  1. SIMVASTATIN. [Suspect]
     Active Substance: SIMVASTATIN
     Indication: BLOOD CHOLESTEROL INCREASED
     Dosage: 40 MG, QD, AT NIGHT
     Route: 048
     Dates: start: 20160104, end: 20170830
  2. SIMVASTATIN. [Suspect]
     Active Substance: SIMVASTATIN
     Dosage: 40 MG, QD, AT NIGHT
     Route: 048

REACTIONS (11)
  - Muscle spasms [Recovering/Resolving]
  - Fatigue [Recovering/Resolving]
  - Nausea [Recovering/Resolving]
  - Central pain syndrome [Not Recovered/Not Resolved]
  - Myelitis [Not Recovered/Not Resolved]
  - Hyperhidrosis [Recovering/Resolving]
  - Influenza like illness [Recovering/Resolving]
  - Asthenia [Recovering/Resolving]
  - Tinnitus [Recovering/Resolving]
  - Feeling abnormal [Not Recovered/Not Resolved]
  - Condition aggravated [Recovering/Resolving]
